FAERS Safety Report 6331725-9 (Version None)
Quarter: 2009Q3

REPORT INFORMATION
  Report Type: 
  Country: None (occurrence: None)
  Receive Date: 20090827
  Receipt Date: 20090821
  Transmission Date: 20100115
  Serious: Yes (Hospitalization)
  Sender: FDA-Public Use
  Company Number: DE-GENENTECH-289249

PATIENT
  Sex: Male

DRUGS (6)
  1. BEVACIZUMAB [Suspect]
     Indication: HEPATIC NEOPLASM MALIGNANT
     Dosage: 420 MG, UNK
     Route: 042
     Dates: start: 20090304, end: 20090819
  2. BEVACIZUMAB [Suspect]
     Indication: HEPATOBILIARY NEOPLASM
  3. RAD001 [Suspect]
     Indication: HEPATIC NEOPLASM MALIGNANT
     Dosage: 5 MG, UNK
     Route: 048
     Dates: start: 20090304, end: 20090819
  4. ROSIGLITAZONE [Concomitant]
     Indication: DRUG USE FOR UNKNOWN INDICATION
     Dosage: UNK
     Dates: start: 20000101
  5. EPROSARTAN MESYLATE [Concomitant]
     Indication: DRUG USE FOR UNKNOWN INDICATION
     Dosage: UNK
     Dates: start: 20050101
  6. METFORMIN HCL [Concomitant]
     Indication: DRUG USE FOR UNKNOWN INDICATION
     Dosage: UNK
     Dates: start: 20000101

REACTIONS (1)
  - TUBERCULOSIS [None]
